FAERS Safety Report 5269784-7 (Version None)
Quarter: 2007Q1

REPORT INFORMATION
  Report Type: 
  Country: None (occurrence: None)
  Receive Date: 20070320
  Receipt Date: 20070307
  Transmission Date: 20070707
  Serious: Yes (Other)
  Sender: FDA-Public Use
  Company Number: US-ELI_LILLY_AND_COMPANY-US200703001598

PATIENT
  Age: 68 Year
  Sex: Female

DRUGS (9)
  1. FORTEO [Suspect]
     Indication: OSTEOPOROSIS
     Dates: start: 20060901, end: 20070306
  2. BENADRYL [Concomitant]
  3. LISINOPRIL [Concomitant]
     Indication: HYPERTENSION
  4. SULAR [Concomitant]
     Indication: HYPERTENSION
  5. HYDROXYZINE [Concomitant]
  6. TOPROL-XL [Concomitant]
     Indication: HYPERTENSION
  7. DOXEPIN HCL [Concomitant]
  8. ALLEGRA [Concomitant]
  9. PREVACID [Concomitant]

REACTIONS (6)
  - ANGIOEDEMA [None]
  - GRANULOMA ANNULARE [None]
  - INJECTION SITE ERYTHEMA [None]
  - PRURITUS [None]
  - SWOLLEN TONGUE [None]
  - URTICARIA [None]
